FAERS Safety Report 15464860 (Version 1)
Quarter: 2018Q4

REPORT INFORMATION
  Report Type: Other
  Country: IT (occurrence: IT)
  Receive Date: 20181004
  Receipt Date: 20181004
  Transmission Date: 20190204
  Serious: Yes (Other)
  Sender: FDA-Public Use
  Company Number: IT-ACIC FINE CHEMICALS INC-2055688

PATIENT
  Age: 40 Year
  Sex: Female

DRUGS (5)
  1. ETILENESTRADIOL [Concomitant]
  2. LEVETIRACETAM. [Suspect]
     Active Substance: LEVETIRACETAM
     Indication: GENERALISED TONIC-CLONIC SEIZURE
     Route: 048
  3. GESTODENE [Concomitant]
     Active Substance: GESTODENE
  4. CETRORELIX [Concomitant]
     Active Substance: CETRORELIX
  5. FOLLITROPIN BETA [Concomitant]
     Active Substance: FOLLITROPIN

REACTIONS (1)
  - Generalised tonic-clonic seizure [None]
